FAERS Safety Report 15099800 (Version 1)
Quarter: 2018Q3

REPORT INFORMATION
  Report Type: Spontaneous
  Country: HR (occurrence: HR)
  Receive Date: 20180702
  Receipt Date: 20180702
  Transmission Date: 20181010
  Serious: Yes (Disabling, Other)
  Sender: FDA-Public Use
  Company Number: HR-AMGEN-HRVSP2018086692

PATIENT
  Age: 12 Year
  Sex: Male
  Weight: 65 kg

DRUGS (1)
  1. BLINCYTO [Suspect]
     Active Substance: BLINATUMOMAB
     Indication: NON-HODGKIN^S LYMPHOMA
     Dosage: GRADUAL INCREASE UP TO MAXIMUM OF 60 MCG/ DAY
     Route: 042
     Dates: start: 20180222, end: 20180317

REACTIONS (4)
  - Eyelid ptosis [Unknown]
  - Off label use [Unknown]
  - Deafness [Unknown]
  - Seizure [Unknown]

NARRATIVE: CASE EVENT DATE: 20180314
